FAERS Safety Report 25136629 (Version 1)
Quarter: 2025Q1

REPORT INFORMATION
  Report Type: Spontaneous
  Country: US (occurrence: US)
  Receive Date: 20250328
  Receipt Date: 20250328
  Transmission Date: 20250409
  Serious: No
  Sender: DR REDDYS
  Company Number: US-DRL-USA-USA/2025/03/004552

PATIENT
  Age: 28 Year
  Sex: Female

DRUGS (2)
  1. NEOSTIGMINE [Suspect]
     Active Substance: NEOSTIGMINE
     Indication: Post lumbar puncture syndrome
  2. ATROPINE [Suspect]
     Active Substance: ATROPINE
     Indication: Post lumbar puncture syndrome

REACTIONS (2)
  - Drug ineffective [Unknown]
  - Off label use [Unknown]
